FAERS Safety Report 11369874 (Version 1)
Quarter: 2015Q3

REPORT INFORMATION
  Report Type: Spontaneous
  Country: US (occurrence: US)
  Receive Date: 20150812
  Receipt Date: 20150812
  Transmission Date: 20151125
  Serious: No
  Sender: FDA-Public Use
  Company Number: US-JNJFOC-20150603316

PATIENT

DRUGS (5)
  1. ETHIODIZED OIL [Concomitant]
     Active Substance: ETHIODIZED OIL
     Indication: NEUROENDOCRINE TUMOUR
     Route: 065
  2. MITOMYCIN. [Concomitant]
     Active Substance: MITOMYCIN
     Indication: NEUROENDOCRINE TUMOUR
     Route: 065
  3. DOXORUBICIN HYDROCHLORIDE. [Suspect]
     Active Substance: DOXORUBICIN HYDROCHLORIDE
     Indication: NEUROENDOCRINE TUMOUR
     Route: 042
  4. CISPLATINUM [Concomitant]
     Active Substance: CISPLATIN
     Indication: NEUROENDOCRINE TUMOUR
     Route: 065
  5. IOXAGLATE SODIUM. [Concomitant]
     Active Substance: IOXAGLATE SODIUM
     Indication: NEUROENDOCRINE TUMOUR
     Route: 065

REACTIONS (2)
  - Incorrect route of drug administration [Unknown]
  - Off label use [Unknown]
